FAERS Safety Report 23362412 (Version 3)
Quarter: 2024Q2

REPORT INFORMATION
  Report Type: Spontaneous
  Country: US (occurrence: US)
  Receive Date: 20240103
  Receipt Date: 20240506
  Transmission Date: 20240715
  Serious: Yes (Hospitalization)
  Sender: FDA-Public Use
  Company Number: US-PFIZER INC-PV202300100978

PATIENT
  Age: 82 Year
  Sex: Male
  Weight: 74.83 kg

DRUGS (1)
  1. VYNDAMAX [Suspect]
     Active Substance: TAFAMIDIS
     Indication: Amyloidosis
     Dosage: 61 MG, DAILY
     Route: 048
     Dates: start: 202306

REACTIONS (3)
  - Atrial fibrillation [Unknown]
  - Shock [Unknown]
  - Malaise [Unknown]
